FAERS Safety Report 4501264-6 (Version None)
Quarter: 2004Q4

REPORT INFORMATION
  Report Type: 
  Country: None (occurrence: None)
  Receive Date: 20041110
  Receipt Date: 20041025
  Transmission Date: 20050328
  Serious: Yes (Hospitalization)
  Sender: FDA-Public Use
  Company Number: DSA_25245_2004

PATIENT
  Age: 70 Year
  Sex: Female

DRUGS (4)
  1. TEMESTA [Suspect]
     Dosage: 1 MG Q DAY PO
     Route: 048
  2. EUPRESSYL [Suspect]
     Dosage: DF BID PO
     Route: 048
  3. KARDEGIC [Suspect]
     Dosage: 75 MG Q DAY PO
     Route: 048
  4. ZOCOR [Suspect]
     Dosage: DF PO
     Route: 048
     Dates: end: 20040825

REACTIONS (1)
  - HYPERHIDROSIS [None]
